FAERS Safety Report 7887415-4 (Version None)
Quarter: 2011Q4

REPORT INFORMATION
  Report Type: 
  Country: None (occurrence: None)
  Receive Date: 20111102
  Receipt Date: 20110719
  Transmission Date: 20120403
  Serious: No
  Sender: FDA-Public Use
  Company Number: US-AMGEN-USASP2011036710

PATIENT
  Age: 29 Year
  Sex: Female
  Weight: 48.98 kg

DRUGS (2)
  1. ALEVE [Concomitant]
     Dosage: 220 MG, UNK
     Route: 048
  2. ENBREL [Suspect]
     Indication: PRODUCT USED FOR UNKNOWN INDICATION
     Dosage: 50 MG, QWK

REACTIONS (2)
  - INJECTION SITE PRURITUS [None]
  - INJECTION SITE ERYTHEMA [None]
